FAERS Safety Report 9349703 (Version 3)
Quarter: 2013Q4

REPORT INFORMATION
  Report Type: Report from Study
  Country: JP (occurrence: JP)
  Receive Date: 20130614
  Receipt Date: 20131029
  Transmission Date: 20140711
  Serious: Yes (Other)
  Sender: FDA-Public Use
  Company Number: JP-009507513-1305JPN007455

PATIENT
  Age: 41 Year
  Sex: Female
  Weight: 62 kg

DRUGS (5)
  1. GANIRELIX ACETATE [Suspect]
     Indication: PREVENTION OF PREMATURE OVULATION
     Dosage: 0.25 MG, QD, STRENTH-0.25MG
     Route: 058
     Dates: start: 20111130, end: 20111202
  2. FOLYRMON P [Concomitant]
     Indication: IN VITRO FERTILISATION
     Dosage: DOSE: 225 (UNDER 1000 UNIT), QD
     Route: 058
     Dates: start: 20111125, end: 20111202
  3. SUPRECUR [Concomitant]
     Indication: OVULATION INDUCTION
     Dosage: 600 MICROGRAM, QD
     Route: 051
     Dates: start: 20111203, end: 20111203
  4. JULINA [Concomitant]
     Indication: IN VITRO FERTILISATION
     Dosage: FORMULATION : POR, DIVIDED DOSE FREQUENCY UNKNOWN 1-2 MG, QD
     Route: 048
     Dates: start: 20120117, end: 20120308
  5. PROGESTERONE [Concomitant]
     Indication: IN VITRO FERTILISATION
     Dosage: 300 MG DIVIDED DOSE FREQUENCY UNKNOWN,
     Route: 067
     Dates: start: 20120127, end: 20120308

REACTIONS (2)
  - Abortion [Recovering/Resolving]
  - Exposure during pregnancy [Recovered/Resolved]
